FAERS Safety Report 4803955-6 (Version None)
Quarter: 2005Q3

REPORT INFORMATION
  Report Type: 
  Country: None (occurrence: None)
  Receive Date: 20050920
  Receipt Date: 20050614
  Transmission Date: 20060218
  Serious: No
  Sender: FDA-Public Use
  Company Number: US-YAMANOUCHI-YPA20050329

PATIENT
  Age: 56 Year
  Sex: Male
  Weight: 58.9676 kg

DRUGS (3)
  1. VESICARE [Suspect]
     Indication: BLADDER SPASM
     Dosage: 5 MG QD PO
     Route: 048
     Dates: start: 20050606, end: 20050611
  2. BACLOFEN [Concomitant]
  3. OXYBUTYNIN [Concomitant]

REACTIONS (9)
  - ABDOMINAL PAIN UPPER [None]
  - CONSTIPATION [None]
  - DIZZINESS [None]
  - DRY MOUTH [None]
  - DYSPNOEA [None]
  - HEAT STROKE [None]
  - LOSS OF CONSCIOUSNESS [None]
  - NAUSEA [None]
  - VISION BLURRED [None]
